FAERS Safety Report 4467696-X (Version None)
Quarter: 2004Q3

REPORT INFORMATION
  Report Type: 
  Country: None (occurrence: None)
  Receive Date: 20040929
  Receipt Date: 20040921
  Transmission Date: 20050211
  Serious: No
  Sender: FDA-Public Use
  Company Number: THYM-10270

PATIENT
  Age: 59 Year
  Sex: Female
  Weight: 61 kg

DRUGS (8)
  1. THYMOGLOBULIN [Suspect]
     Indication: RENAL TRANSPLANT
     Dosage: 80 MG QD
     Dates: start: 20030911, end: 20030915
  2. NEORAL [Concomitant]
  3. CELLCEPT [Concomitant]
  4. SIMVASTATIN [Concomitant]
  5. METOPROLOL [Concomitant]
  6. BACTRIM [Concomitant]
  7. PRILOSEC [Concomitant]
  8. L-THYROXINE [Concomitant]

REACTIONS (2)
  - PAPILLARY THYROID CANCER [None]
  - RECURRENT CANCER [None]
